FAERS Safety Report 15272591 (Version 2)
Quarter: 2018Q3

REPORT INFORMATION
  Report Type: Spontaneous
  Country: GB (occurrence: IN)
  Receive Date: 20180813
  Receipt Date: 20180906
  Transmission Date: 20181010
  Serious: Yes (Hospitalization, Other)
  Sender: FDA-Public Use
  Company Number: PHHY2018IN066852

PATIENT
  Age: 38 Year
  Sex: Female

DRUGS (7)
  1. ETHAMBUTOL [Suspect]
     Active Substance: ETHAMBUTOL HYDROCHLORIDE
     Indication: TUBERCULOSIS
     Route: 065
  2. PYRAZINAMIDE. [Suspect]
     Active Substance: PYRAZINAMIDE
     Indication: EVIDENCE BASED TREATMENT
  3. PYRAZINAMIDE. [Suspect]
     Active Substance: PYRAZINAMIDE
     Indication: TUBERCULOSIS
     Route: 065
  4. ETHAMBUTOL [Suspect]
     Active Substance: ETHAMBUTOL HYDROCHLORIDE
     Indication: EVIDENCE BASED TREATMENT
  5. ISONIAZID. [Suspect]
     Active Substance: ISONIAZID
     Indication: TUBERCULOSIS
     Route: 065
  6. RIFAMPICIN [Suspect]
     Active Substance: RIFAMPIN
     Indication: TUBERCULOSIS
     Route: 065
  7. RIFAMPICIN [Suspect]
     Active Substance: RIFAMPIN
     Indication: EVIDENCE BASED TREATMENT

REACTIONS (13)
  - Ocular icterus [Recovering/Resolving]
  - Pruritus [Recovering/Resolving]
  - Cachexia [Recovering/Resolving]
  - Malaise [Unknown]
  - Abdominal pain [Recovering/Resolving]
  - Oedema peripheral [Recovering/Resolving]
  - Nail disorder [Recovering/Resolving]
  - Drug-induced liver injury [Recovering/Resolving]
  - Ascites [Recovering/Resolving]
  - Jaundice [Recovering/Resolving]
  - Pyrexia [Unknown]
  - Decreased appetite [Recovering/Resolving]
  - Hepatic failure [Recovering/Resolving]
